FAERS Safety Report 23489209 (Version 1)
Quarter: 2024Q1

REPORT INFORMATION
  Report Type: Spontaneous
  Country: US (occurrence: US)
  Receive Date: 20240206
  Receipt Date: 20240206
  Transmission Date: 20240410
  Serious: No
  Sender: FDA-Public Use
  Company Number: US-LEX-000137

PATIENT
  Age: 76 Year
  Sex: Female

DRUGS (1)
  1. INPEFA [Suspect]
     Active Substance: SOTAGLIFLOZIN
     Indication: Product used for unknown indication
     Route: 048
     Dates: start: 20231219

REACTIONS (4)
  - Dizziness [Unknown]
  - Chest pain [Unknown]
  - Fatigue [Unknown]
  - Presyncope [Unknown]

NARRATIVE: CASE EVENT DATE: 20231221
